FAERS Safety Report 12216570 (Version 1)
Quarter: 2016Q1

REPORT INFORMATION
  Report Type: Spontaneous
  Country: US (occurrence: None)
  Receive Date: 20160328
  Receipt Date: 20160328
  Transmission Date: 20160526
  Serious: Yes (Hospitalization, Disabling)
  Sender: FDA-Public Use
  Company Number: None

PATIENT
  Age: 28 Year
  Sex: Female
  Weight: 81.65 kg

DRUGS (6)
  1. B6 [Concomitant]
     Active Substance: PYRIDOXINE HYDROCHLORIDE
  2. VITAMIN B12 [Concomitant]
     Active Substance: CYANOCOBALAMIN
  3. OMEGA 3, 6, 9 [Concomitant]
  4. REGLAN [Suspect]
     Active Substance: METOCLOPRAMIDE HYDROCHLORIDE
     Indication: MIGRAINE
     Dosage: 1 INJECTION ONCE INTO A VEIN
     Route: 042
     Dates: start: 20160131, end: 20160131
  5. SYNTHROID [Concomitant]
     Active Substance: LEVOTHYROXINE SODIUM
  6. MAGNESIUM [Concomitant]
     Active Substance: MAGNESIUM

REACTIONS (9)
  - Palpitations [None]
  - Tremor [None]
  - Nausea [None]
  - Feeding disorder [None]
  - Muscle spasms [None]
  - Feeling abnormal [None]
  - Dizziness [None]
  - Anxiety [None]
  - Visual impairment [None]

NARRATIVE: CASE EVENT DATE: 20160131
